FAERS Safety Report 6160340-5 (Version None)
Quarter: 2009Q2

REPORT INFORMATION
  Report Type: 
  Country: None (occurrence: None)
  Receive Date: 20090420
  Receipt Date: 20090415
  Transmission Date: 20091009
  Serious: Yes (Hospitalization)
  Sender: FDA-Public Use
  Company Number: AU-BRISTOL-MYERS SQUIBB COMPANY-14589881

PATIENT
  Age: 55 Year
  Sex: Male

DRUGS (2)
  1. EFAVIRENZ [Suspect]
  2. REYATAZ [Suspect]
     Dosage: 1 D.F=300/100 MG

REACTIONS (2)
  - CARDIAC FAILURE CONGESTIVE [None]
  - CARDIOMYOPATHY [None]
